FAERS Safety Report 4595818-9 (Version None)
Quarter: 2005Q1

REPORT INFORMATION
  Report Type: 
  Country: None (occurrence: None)
  Receive Date: 20050224
  Receipt Date: 20050224
  Transmission Date: 20050727
  Serious: Yes (Other)
  Sender: FDA-Public Use
  Company Number: None

PATIENT
  Age: 73 Year
  Sex: Male

DRUGS (2)
  1. THALIDOMIDE [Suspect]
     Dosage: 100 MG DAILY
  2. OLANZAPINE [Concomitant]

REACTIONS (2)
  - MENTAL STATUS CHANGES [None]
  - PSYCHOTIC DISORDER [None]
